FAERS Safety Report 21643681 (Version 2)
Quarter: 2022Q4

REPORT INFORMATION
  Report Type: Spontaneous
  Country: CN (occurrence: CN)
  Receive Date: 20221125
  Receipt Date: 20221130
  Transmission Date: 20230113
  Serious: Yes (Other)
  Sender: FDA-Public Use
  Company Number: CN-002147023-NVSC2022CN258833

PATIENT
  Age: 51 Year
  Sex: Male
  Weight: 80 kg

DRUGS (9)
  1. SANDOSTATIN [Suspect]
     Active Substance: OCTREOTIDE ACETATE
     Indication: Digestive enzyme abnormal
     Dosage: 0.600 MG, QD (ROUTE OF ADMINISTRATOIN: PUMP INJECTION)
     Route: 065
     Dates: start: 20210419, end: 20210421
  2. SANDOSTATIN [Suspect]
     Active Substance: OCTREOTIDE ACETATE
  3. SANDOSTATIN [Suspect]
     Active Substance: OCTREOTIDE ACETATE
  4. OCTREOTIDE ACETATE [Suspect]
     Active Substance: OCTREOTIDE ACETATE
     Indication: Digestive enzyme abnormal
     Dosage: 0.100 MG, TID
     Route: 058
     Dates: start: 20210421, end: 20210422
  5. ENOXAPARIN SODIUM [Suspect]
     Active Substance: ENOXAPARIN SODIUM
     Indication: Coagulopathy
     Dosage: 4000 UNIT, QD
     Route: 058
     Dates: start: 20210419, end: 20210426
  6. LANSOPRAZOLE [Suspect]
     Active Substance: LANSOPRAZOLE
     Indication: Acidosis
     Dosage: 30 MG, BID
     Route: 041
     Dates: start: 20210419, end: 20210423
  7. AMOXICILLIN\CLAVULANATE POTASSIUM [Suspect]
     Active Substance: AMOXICILLIN\CLAVULANATE POTASSIUM
     Indication: Infection
     Dosage: 1.20 G, TID
     Route: 041
     Dates: start: 20210419, end: 20210425
  8. SODIUM CHLORIDE [Concomitant]
     Active Substance: SODIUM CHLORIDE
     Indication: Prophylaxis
     Dosage: 100 ML, BID
     Route: 041
     Dates: start: 20210419, end: 20210422
  9. SODIUM CHLORIDE [Concomitant]
     Active Substance: SODIUM CHLORIDE
     Dosage: 48 ML, QD (ROUTE OF ADMINISTRATION: PUMP INJECTION)
     Route: 065
     Dates: start: 20210419, end: 20210421

REACTIONS (1)
  - Liver injury [Recovering/Resolving]

NARRATIVE: CASE EVENT DATE: 20210424
